FAERS Safety Report 6170482-6 (Version None)
Quarter: 2009Q2

REPORT INFORMATION
  Report Type: 
  Country: None (occurrence: None)
  Receive Date: 20090428
  Receipt Date: 20090422
  Transmission Date: 20091009
  Serious: Yes (Hospitalization)
  Sender: FDA-Public Use
  Company Number: JP-EISAI INC.-E2090-00681-SPO-JP

PATIENT
  Sex: Female

DRUGS (20)
  1. EXCEGRAN [Suspect]
     Indication: EPILEPSY
     Route: 048
     Dates: start: 20090226, end: 20090227
  2. TEGRETOL [Suspect]
     Indication: TEMPORAL LOBE EPILEPSY
     Route: 048
  3. TEGRETOL [Suspect]
     Route: 048
  4. DEPAKENE [Concomitant]
     Route: 048
  5. RIZE [Concomitant]
     Indication: ANXIETY
     Route: 048
  6. RINDERON-A [Concomitant]
     Indication: EYE INFLAMMATION
     Route: 048
     Dates: start: 20090220
  7. TAKEPRON [Concomitant]
     Indication: GASTROINTESTINAL ULCER
     Route: 048
     Dates: start: 20090220
  8. PREDONINE [Concomitant]
     Indication: INFLAMMATION
     Route: 048
     Dates: start: 20090223, end: 20090228
  9. PREDONINE [Concomitant]
     Route: 048
     Dates: start: 20090307, end: 20090308
  10. PREDONINE [Concomitant]
     Route: 048
     Dates: start: 20090309, end: 20090310
  11. PREDONINE [Concomitant]
     Route: 048
     Dates: start: 20090311, end: 20090312
  12. GLYCYRON [Concomitant]
     Indication: LIVER DISORDER
     Dates: start: 20090226
  13. PRIDOL [Concomitant]
     Indication: DRUG ERUPTION
     Dates: start: 20090301, end: 20090306
  14. ISOTONIC SODIUM CHLORIDE SOLUTION [Concomitant]
     Indication: DRUG ERUPTION
     Dates: start: 20090301, end: 20090306
  15. VOLTAREN [Concomitant]
     Indication: ANTIPYRESIS
     Dates: start: 20090301, end: 20090301
  16. SOLDEM 3A [Concomitant]
     Dates: start: 20090303, end: 20090306
  17. LACTEC [Concomitant]
     Dates: start: 20090303, end: 20090306
  18. NEO-MINOPHAGEN C [Concomitant]
     Indication: LIVER DISORDER
     Dates: start: 20090303, end: 20090306
  19. MYSER [Concomitant]
     Indication: DRUG ERUPTION
     Dates: start: 20090304
  20. DIPHENHYDRAMINE HCL [Concomitant]
     Dates: start: 20090303

REACTIONS (1)
  - STEVENS-JOHNSON SYNDROME [None]
